FAERS Safety Report 9521780 (Version 2)
Quarter: 2013Q3

REPORT INFORMATION
  Report Type: Report from Study
  Country: TW (occurrence: TW)
  Receive Date: 20130913
  Receipt Date: 20130920
  Transmission Date: 20140515
  Serious: Yes (Hospitalization, Other)
  Sender: FDA-Public Use
  Company Number: PHHY2013TW099711

PATIENT
  Age: 62 Year
  Sex: Female
  Weight: 56 kg

DRUGS (5)
  1. ZOLEDRONATE [Suspect]
     Indication: PLASMA CELL MYELOMA
     Dosage: 4 MG PER VIAL, UNK
     Route: 042
     Dates: start: 20130809
  2. THALIDOMIDE [Concomitant]
     Indication: PLASMA CELL MYELOMA
     Dosage: 100 MG, UNK
     Dates: start: 20130906
  3. DEXAMETHASONE [Concomitant]
     Indication: PLASMA CELL MYELOMA
     Dosage: 20 MG, QD
     Dates: start: 20130906
  4. VELCADE [Concomitant]
     Indication: PLASMA CELL MYELOMA
     Dosage: 2.2 MG, PRN
     Dates: start: 20130906
  5. DIPHENHYDRAMIN HCL [Concomitant]
     Indication: ALLERGY PROPHYLAXIS
     Dosage: UNK UKN, UNK
     Dates: start: 20130909

REACTIONS (11)
  - Pneumocystis jirovecii pneumonia [Not Recovered/Not Resolved]
  - Productive cough [Unknown]
  - Cough [Unknown]
  - Pyrexia [Unknown]
  - Dyspnoea [Unknown]
  - Pleural effusion [Unknown]
  - Spinal osteoarthritis [Unknown]
  - Ascites [Unknown]
  - Lung consolidation [Unknown]
  - Abdominal pain upper [Unknown]
  - Blood pressure systolic increased [Unknown]
